FAERS Safety Report 5220879-3 (Version None)
Quarter: 2007Q1

REPORT INFORMATION
  Report Type: 
  Country: None (occurrence: None)
  Receive Date: 20070126
  Receipt Date: 20070125
  Transmission Date: 20070707
  Serious: Yes (Hospitalization)
  Sender: FDA-Public Use
  Company Number: GXKR2006BR02676

PATIENT
  Age: 3 Year
  Sex: Female

DRUGS (1)
  1. AMOXICILLIN + CLAVULANATE K [Suspect]
     Indication: SINUSITIS
     Route: 048

REACTIONS (1)
  - PURPURA [None]
